FAERS Safety Report 16460388 (Version 2)
Quarter: 2019Q3

REPORT INFORMATION
  Report Type: Spontaneous
  Country: JP (occurrence: JP)
  Receive Date: 20190620
  Receipt Date: 20190719
  Transmission Date: 20191004
  Serious: Yes (Hospitalization, Other)
  Sender: FDA-Public Use
  Company Number: JP-ABBVIE-19P-087-2826855-00

PATIENT
  Age: 51 Year
  Sex: Female
  Weight: 62.6 kg

DRUGS (3)
  1. LEUPLIN [Suspect]
     Active Substance: LEUPROLIDE ACETATE
     Indication: BREAST CANCER
     Route: 058
     Dates: start: 2019
  2. LEUPLIN SR [Suspect]
     Active Substance: LEUPROLIDE ACETATE
     Indication: BREAST CANCER
     Route: 058
     Dates: start: 20181218, end: 20190311
  3. NOLVADEX [Suspect]
     Active Substance: TAMOXIFEN CITRATE
     Indication: BREAST CANCER
     Dosage: 20 MILLIGRAM, QD
     Route: 048
     Dates: start: 20180829, end: 20190527

REACTIONS (9)
  - Acute abdomen [Recovering/Resolving]
  - Gastrointestinal oedema [Recovered/Resolved]
  - Pancreatitis acute [Unknown]
  - Hyperfibrinolysis [Unknown]
  - Hyperlipidaemia [Unknown]
  - Hypercoagulation [Unknown]
  - Blood triglycerides increased [Recovered/Resolved]
  - Mesenteritis [Recovered/Resolved]
  - Vascular insufficiency [Unknown]

NARRATIVE: CASE EVENT DATE: 2019
